FAERS Safety Report 23621746 (Version 1)
Quarter: 2024Q1

REPORT INFORMATION
  Report Type: Spontaneous
  Country: US (occurrence: None)
  Receive Date: 20240311
  Receipt Date: 20240311
  Transmission Date: 20240409
  Serious: Yes (unspecified)
  Sender: FDA-Public Use
  Company Number: None

PATIENT
  Age: 28 Year
  Weight: 81 kg

DRUGS (3)
  1. ABILIFY [Suspect]
     Active Substance: ARIPIPRAZOLE
     Indication: Schizoaffective disorder
     Dates: start: 20200805, end: 20230930
  2. LUVOX [Suspect]
     Active Substance: FLUVOXAMINE MALEATE
  3. SEROQUEL [Concomitant]
     Active Substance: QUETIAPINE FUMARATE

REACTIONS (7)
  - Monoplegia [None]
  - Hypoaesthesia [None]
  - Dizziness [None]
  - Dizziness [None]
  - Dyskinesia [None]
  - Dysarthria [None]
  - Tremor [None]

NARRATIVE: CASE EVENT DATE: 20230918
